FAERS Safety Report 24139918 (Version 1)
Quarter: 2024Q3

REPORT INFORMATION
  Report Type: Spontaneous
  Country: US (occurrence: US)
  Receive Date: 20240726
  Receipt Date: 20240726
  Transmission Date: 20241016
  Serious: No
  Sender: GLAXOSMITHKLINE
  Company Number: US-GSK-US2024089430

PATIENT
  Age: 41 Year
  Sex: Male

DRUGS (1)
  1. NUCALA [Suspect]
     Active Substance: MEPOLIZUMAB
     Indication: Product used for unknown indication
     Dosage: UNK

REACTIONS (4)
  - Exposure via skin contact [Not Recovered/Not Resolved]
  - Panic attack [Unknown]
  - Asthma [Unknown]
  - Multiple allergies [Unknown]

NARRATIVE: CASE EVENT DATE: 20240715
